FAERS Safety Report 10197197 (Version 1)
Quarter: 2014Q2

REPORT INFORMATION
  Report Type: Spontaneous
  Country: CH (occurrence: CH)
  Receive Date: 20140527
  Receipt Date: 20140527
  Transmission Date: 20141212
  Serious: Yes (Other)
  Sender: FDA-Public Use
  Company Number: PHHY2014CH063095

PATIENT
  Age: 40 Year
  Sex: Male

DRUGS (5)
  1. GILENYA [Suspect]
     Indication: MULTIPLE SCLEROSIS
     Dosage: 0.5 MG, QD
     Route: 048
     Dates: start: 200908
  2. NEXIUM [Concomitant]
     Route: 048
  3. SORTIS [Concomitant]
     Route: 048
  4. MICARDIS PLUS [Concomitant]
     Route: 048
  5. ZANIDIP [Concomitant]
     Route: 048

REACTIONS (4)
  - Non-alcoholic steatohepatitis [Recovered/Resolved]
  - Hyperlipidaemia [Not Recovered/Not Resolved]
  - Pneumonia [Unknown]
  - Hypertension [Not Recovered/Not Resolved]
